FAERS Safety Report 11398737 (Version 1)
Quarter: 2015Q3

REPORT INFORMATION
  Report Type: Spontaneous
  Country: US (occurrence: None)
  Receive Date: 20150804
  Receipt Date: 20150804
  Transmission Date: 20151125
  Serious: Yes (Other)
  Sender: FDA-Public Use
  Company Number: 1000070355

PATIENT
  Age: 75 Year
  Sex: Female

DRUGS (2)
  1. LOVASTATIN. [Concomitant]
     Active Substance: LOVASTATIN
  2. NAMENDA XR [Suspect]
     Active Substance: MEMANTINE HYDROCHLORIDE
     Indication: DEMENTIA
     Route: 048
     Dates: start: 201311

REACTIONS (5)
  - Vomiting [None]
  - Constipation [None]
  - Dizziness [None]
  - Hiccups [None]
  - Urinary tract infection [None]

NARRATIVE: CASE EVENT DATE: 201403
